FAERS Safety Report 8781121 (Version 1)
Quarter: 2012Q4

REPORT INFORMATION
  Report Type: 
  Country: FR (occurrence: FR)
  Receive Date: 20120913
  Receipt Date: 20120913
  Transmission Date: 20130627
  Serious: Yes (Other)
  Sender: FDA-Public Use
  Company Number: PHHY2012FR079219

PATIENT
  Age: 11 Year
  Sex: Male

DRUGS (4)
  1. ZOMETA [Suspect]
     Indication: BONE SARCOMA
     Dosage: 50 ug/kg, one every month
     Route: 042
  2. ETOPOSIDE [Suspect]
     Indication: BONE SARCOMA
     Dosage: UNK
  3. METHOTREXATE [Suspect]
     Indication: BONE SARCOMA
  4. IFOSFAMIDE [Suspect]
     Indication: BONE SARCOMA

REACTIONS (2)
  - Growth retardation [Recovered/Resolved]
  - Growing pains [Unknown]
